FAERS Safety Report 18563230 (Version 1)
Quarter: 2020Q4

REPORT INFORMATION
  Report Type: Report from Study
  Country: US (occurrence: US)
  Receive Date: 20201201
  Receipt Date: 20201201
  Transmission Date: 20210114
  Serious: Yes (Hospitalization, Other)
  Sender: FDA-Public Use
  Company Number: US-GILEAD-2020-0506374

PATIENT
  Age: 78 Year
  Sex: Female

DRUGS (12)
  1. FLORASTOR [LACTOBACILLUS ACIDOPHILUS] [Concomitant]
  2. LANSOPRAZOLE. [Concomitant]
     Active Substance: LANSOPRAZOLE
  3. ALIGN [Concomitant]
     Active Substance: BIFIDOBACTERIUM LONGUM SUBSP. INFANTIS
  4. AMBRISENTAN [Suspect]
     Active Substance: AMBRISENTAN
     Indication: PULMONARY ARTERIAL HYPERTENSION
     Dosage: 5 MG, QD
     Route: 065
     Dates: start: 20171017
  5. DILTIAZEM. [Concomitant]
     Active Substance: DILTIAZEM
  6. CYTOTEC [Concomitant]
     Active Substance: MISOPROSTOL
  7. FUROSEMIDE. [Concomitant]
     Active Substance: FUROSEMIDE
  8. SPIRONOLACTONE. [Concomitant]
     Active Substance: SPIRONOLACTONE
  9. ASPIRIN [ACETYLSALICYLIC ACID] [Concomitant]
     Active Substance: ASPIRIN
  10. CALTRATE D [CALCIUM;COLECALCIFEROL] [Concomitant]
  11. ESTRADIOL. [Concomitant]
     Active Substance: ESTRADIOL
  12. RIFAXIMIN. [Concomitant]
     Active Substance: RIFAXIMIN

REACTIONS (1)
  - Heart valve replacement [Recovered/Resolved]

NARRATIVE: CASE EVENT DATE: 20201102
